FAERS Safety Report 5009502-0 (Version None)
Quarter: 2006Q2

REPORT INFORMATION
  Report Type: 
  Country: None (occurrence: None)
  Receive Date: 20060522
  Receipt Date: 20060508
  Transmission Date: 20061013
  Serious: Yes (Hospitalization, Other)
  Sender: FDA-Public Use
  Company Number: 2006S1000074

PATIENT
  Age: 63 Year
  Sex: Male
  Weight: 55 kg

DRUGS (41)
  1. CUBICIN [Suspect]
     Indication: CATHETER BACTERAEMIA
     Dosage: 4 MG/KG; Q24H; IV
     Route: 042
     Dates: start: 20051202, end: 20060101
  2. CUBICIN [Suspect]
     Indication: ENDOCARDITIS
     Dosage: 4 MG/KG; Q24H; IV
     Route: 042
     Dates: start: 20051202, end: 20060101
  3. GENTAMICIN [Suspect]
     Indication: ENDOCARDITIS
     Dosage: IV
     Route: 042
     Dates: start: 20060403, end: 20060405
  4. LINEZOLID [Concomitant]
  5. ALBUMIN [Concomitant]
  6. SODIUM BICARBONATE [Concomitant]
  7. CALCIUM GLUCONATE [Concomitant]
  8. CASPOFUNGIN [Concomitant]
  9. FENTANYL [Concomitant]
  10. INSULIN [Concomitant]
  11. LORAZEPAM [Concomitant]
  12. MAGNESIUM SULFATE [Concomitant]
  13. NITROGLYCERIN [Concomitant]
  14. PANTOPRAZOLE [Concomitant]
  15. POTASSIUM [Concomitant]
  16. PHOSPHORUS [Concomitant]
  17. AMLODIPINE [Concomitant]
  18. PANCREASE [Concomitant]
  19. ASCORBIC ACID [Concomitant]
  20. ACETYLSALICYLIC ACID SRT [Concomitant]
  21. CODEINE [Concomitant]
  22. WARFARIN SODIUM [Concomitant]
  23. DIGOXIN [Concomitant]
  24. DILTIAZEM [Concomitant]
  25. DIPHENHYDRAMINE HCL [Concomitant]
  26. ENALAPRILAT [Concomitant]
  27. LOVENOX [Concomitant]
  28. EPOETIN ALFA [Concomitant]
  29. FAMOTIDINE [Concomitant]
  30. FENOFIBRATE [Concomitant]
  31. FUROSEMIDE [Concomitant]
  32. GLIMEPIRIDE [Concomitant]
  33. HEPARIN [Concomitant]
  34. LACTOBACILLUS [Concomitant]
  35. LOPERAMIDE [Concomitant]
  36. METOCLOPRAMIDE [Concomitant]
  37. METOPROLOL [Concomitant]
  38. MULTI-VITAMIN [Concomitant]
  39. PREDNISONE [Concomitant]
  40. SERTRALINE [Concomitant]
  41. SIMVASTATIN [Concomitant]

REACTIONS (14)
  - AORTIC VALVE DISEASE [None]
  - BLOOD CREATININE INCREASED [None]
  - BRAIN NATRIURETIC PEPTIDE INCREASED [None]
  - CARDIAC VALVE VEGETATION [None]
  - CHILLS [None]
  - CREATININE RENAL CLEARANCE DECREASED [None]
  - DISEASE RECURRENCE [None]
  - DRUG INEFFECTIVE [None]
  - ENDOCARDITIS [None]
  - ENTEROCOCCAL INFECTION [None]
  - PANCREATITIS [None]
  - PYREXIA [None]
  - RENAL IMPAIRMENT [None]
  - STAPHYLOCOCCAL INFECTION [None]
